FAERS Safety Report 6294525-4 (Version None)
Quarter: 2009Q3

REPORT INFORMATION
  Report Type: 
  Country: None (occurrence: None)
  Receive Date: 20090803
  Receipt Date: 20090722
  Transmission Date: 20100115
  Serious: Yes (Life-Threatening, Hospitalization, Other)
  Sender: FDA-Public Use
  Company Number: JP-NOVOPROD-288458

PATIENT
  Age: 59 Year
  Sex: Female
  Weight: 48.7 kg

DRUGS (6)
  1. NOVORAPID 30 MIX CHU [Suspect]
     Indication: TYPE 2 DIABETES MELLITUS
     Dosage: UNK, UNK
     Route: 058
     Dates: start: 20080320, end: 20080801
  2. NOVORAPID 30 MIX CHU [Suspect]
     Dosage: 26 IU, QD
     Route: 058
     Dates: start: 20080801, end: 20080925
  3. LASIX [Concomitant]
     Dosage: 20 MG, QD
     Route: 048
  4. ALDACTONE [Concomitant]
     Dosage: 1 MG, QD
     Route: 048
  5. LOSARTAN POTASSIUM AND HYDROCHLOROTHIAZIDE [Concomitant]
     Dosage: 1 MG, QD
     Route: 048
  6. ADALAT CC [Concomitant]
     Dosage: 80 MG, QD
     Route: 048

REACTIONS (2)
  - DISORIENTATION [None]
  - HYPOGLYCAEMIA [None]
